FAERS Safety Report 23395146 (Version 1)
Quarter: 2024Q1

REPORT INFORMATION
  Report Type: Report from Study
  Country: CA (occurrence: CA)
  Receive Date: 20240112
  Receipt Date: 20240112
  Transmission Date: 20240409
  Serious: Yes (Other)
  Sender: FDA-Public Use
  Company Number: CA-Merck Healthcare KGaA-2024000990

PATIENT
  Sex: Female

DRUGS (1)
  1. MAVENCLAD [Suspect]
     Active Substance: CLADRIBINE
     Indication: Multiple sclerosis
     Dosage: YEAR ONE THERAPY.
     Route: 048
     Dates: start: 20230708

REACTIONS (4)
  - Lower respiratory tract infection [Not Recovered/Not Resolved]
  - Lymphocyte count decreased [Recovering/Resolving]
  - Gastroenteritis viral [Unknown]
  - Sinusitis [Not Recovered/Not Resolved]
